FAERS Safety Report 6398338-4 (Version None)
Quarter: 2009Q4

REPORT INFORMATION
  Report Type: 
  Country: None (occurrence: None)
  Receive Date: 20091007
  Receipt Date: 20090928
  Transmission Date: 20100525
  Serious: Yes (Hospitalization)
  Sender: FDA-Public Use
  Company Number: 2009-197085-NL

PATIENT
  Age: 14 Year
  Sex: Female

DRUGS (9)
  1. DEXAMETHASONE TAB [Suspect]
     Indication: DRUG USE FOR UNKNOWN INDICATION
  2. DASATINIB            (DASATINIB) [Suspect]
     Indication: LEUKAEMIA
     Dosage: 160 MG; QD; PO
     Route: 048
     Dates: start: 20080811, end: 20090109
  3. ASPARAGINASE            (ASPARAGINASE) [Suspect]
     Indication: DRUG USE FOR UNKNOWN INDICATION
     Dates: start: 20090109, end: 20090208
  4. PREDNISOLONE [Suspect]
     Indication: DRUG USE FOR UNKNOWN INDICATION
     Dates: start: 20090109, end: 20090208
  5. CYCLOSPORINE [Suspect]
     Indication: DRUG USE FOR UNKNOWN INDICATION
  6. CYTARABINE [Concomitant]
  7. VINCRISTINE [Concomitant]
  8. DAUNORUBICIN HCL [Concomitant]
  9. METHOTREXATE SODIUM [Concomitant]

REACTIONS (5)
  - AMMONIA INCREASED [None]
  - ARRHYTHMIA [None]
  - HYPERTENSION [None]
  - PRESYNCOPE [None]
  - SYNCOPE [None]
